FAERS Safety Report 21931699 (Version 1)
Quarter: 2023Q1

REPORT INFORMATION
  Report Type: Report from Study
  Country: IT (occurrence: IT)
  Receive Date: 20230131
  Receipt Date: 20230131
  Transmission Date: 20230417
  Serious: Yes (Hospitalization)
  Sender: FDA-Public Use
  Company Number: IT-PFIZER INC-PV202200107866

PATIENT
  Age: 33 Year
  Sex: Female

DRUGS (3)
  1. CYTOTEC [Suspect]
     Active Substance: MISOPROSTOL
     Dosage: 200 UG, FREQUENCY: 6 X DAY
     Route: 060
     Dates: start: 20191105, end: 20191105
  2. PERFALGAN [Concomitant]
     Active Substance: ACETAMINOPHEN
     Dosage: 1000 MG, UNITS: 1 VIAL, FREQUENCY: ONCE
     Route: 042
     Dates: start: 20191105, end: 20191105
  3. IMMUNORHO [Concomitant]
     Dosage: 300 UG, UNITS: 1 VIAL, FREQUENCY: ONCE
     Route: 030
     Dates: start: 20191105, end: 20191105

REACTIONS (2)
  - Pain [Recovered/Resolved]
  - Post abortion haemorrhage [Recovered/Resolved]

NARRATIVE: CASE EVENT DATE: 20191109
